FAERS Safety Report 18297096 (Version 2)
Quarter: 2020Q4

REPORT INFORMATION
  Report Type: Spontaneous
  Country: CH (occurrence: CH)
  Receive Date: 20200922
  Receipt Date: 20201007
  Transmission Date: 20210113
  Serious: Yes (Other)
  Sender: FDA-Public Use
  Company Number: CH-ALLERGAN-2036180US

PATIENT
  Sex: Male
  Weight: 111 kg

DRUGS (1)
  1. ESCITALOPRAM OXALATE - BP [Suspect]
     Active Substance: ESCITALOPRAM OXALATE
     Indication: BURNOUT SYNDROME
     Dosage: 10 MG, QD
     Route: 048
     Dates: start: 20200609, end: 20200615

REACTIONS (3)
  - Hepatitis [Recovered/Resolved]
  - Product use in unapproved indication [Unknown]
  - Bicytopenia [Recovered/Resolved]
